FAERS Safety Report 24791346 (Version 2)
Quarter: 2025Q1

REPORT INFORMATION
  Report Type: Spontaneous
  Country: FR (occurrence: FR)
  Receive Date: 20241231
  Receipt Date: 20250301
  Transmission Date: 20250408
  Serious: Yes (Hospitalization, Other)
  Sender: AUROBINDO
  Company Number: FR-UCBSA-2024045292

PATIENT
  Age: 24 Year
  Sex: Female
  Weight: 63 kg

DRUGS (3)
  1. ALPRAZOLAM [Suspect]
     Active Substance: ALPRAZOLAM
     Indication: Product used for unknown indication
     Route: 065
  2. BIMEKIZUMAB [Suspect]
     Active Substance: BIMEKIZUMAB
     Indication: Psoriasis
     Route: 065
     Dates: start: 20240312
  3. XANAX [Suspect]
     Active Substance: ALPRAZOLAM
     Indication: Product used for unknown indication
     Route: 065

REACTIONS (19)
  - Suicide attempt [Unknown]
  - Suicidal ideation [Recovered/Resolved]
  - Toxicity to various agents [Recovered/Resolved]
  - Abortion spontaneous [Recovered/Resolved]
  - Intermenstrual bleeding [Unknown]
  - Alcohol abuse [Unknown]
  - Tachyphrenia [Unknown]
  - Anxiety [Unknown]
  - Aggression [Unknown]
  - Decreased appetite [Unknown]
  - Apraxia [Unknown]
  - Disorientation [Unknown]
  - Acute stress disorder [Unknown]
  - Initial insomnia [Unknown]
  - Nightmare [Unknown]
  - Maternal exposure before pregnancy [Unknown]
  - Maternal exposure during pregnancy [Unknown]
  - Twin pregnancy [Unknown]
  - Depression [Recovering/Resolving]

NARRATIVE: CASE EVENT DATE: 20240501
